FAERS Safety Report 4676625-5 (Version None)
Quarter: 2005Q2

REPORT INFORMATION
  Report Type: 
  Country: None (occurrence: None)
  Receive Date: 20050527
  Receipt Date: 20050516
  Transmission Date: 20051028
  Serious: Yes (Hospitalization)
  Sender: FDA-Public Use
  Company Number: GB-ROCHE-404870

PATIENT
  Age: 79 Year
  Sex: Female

DRUGS (10)
  1. NAPROXEN [Suspect]
     Indication: GOUT
     Route: 048
     Dates: start: 20050414, end: 20050424
  2. CLOPIDOGREL BISULFATE [Suspect]
     Indication: TRANSIENT ISCHAEMIC ATTACK
     Route: 048
     Dates: start: 20020615, end: 20050426
  3. WARFARIN [Suspect]
     Indication: ATRIAL FIBRILLATION
     Dosage: DOSING AMOUNT OF 4MG WAS REPORTED AS THE MOST RECENT DOSE.
     Route: 048
     Dates: start: 20020615, end: 20050424
  4. OMEPRAZOLE [Suspect]
     Indication: PROPHYLAXIS AGAINST GASTROINTESTINAL ULCER
     Route: 048
     Dates: start: 20050418
  5. SIMVASTATIN [Suspect]
     Indication: BLOOD CHOLESTEROL INCREASED
     Dosage: DOSE TAKEN AT NIGHT
     Route: 048
  6. BISOPROLOL FUMARATE [Suspect]
     Indication: BLOOD PRESSURE INCREASED
     Route: 048
     Dates: end: 20050425
  7. LEVOTHYROXINE SODIUM [Suspect]
     Indication: HYPOTHYROIDISM
     Route: 048
  8. BENDROFLUAZIDE [Suspect]
     Indication: BLOOD PRESSURE INCREASED
     Route: 048
     Dates: start: 20050315, end: 20050425
  9. CO PROXAMOL [Suspect]
     Indication: DRUG USE FOR UNKNOWN INDICATION
     Route: 065
  10. ALLOPURINOL [Suspect]
     Indication: GOUT
     Route: 065

REACTIONS (4)
  - FALL [None]
  - GASTRITIS EROSIVE [None]
  - HAEMATOMA [None]
  - INTERNATIONAL NORMALISED RATIO INCREASED [None]
